FAERS Safety Report 21213828 (Version 1)
Quarter: 2022Q3

REPORT INFORMATION
  Report Type: Spontaneous
  Country: None (occurrence: CN)
  Receive Date: 20220816
  Receipt Date: 20220816
  Transmission Date: 20221027
  Serious: Yes (Other)
  Sender: FDA-Public Use
  Company Number: CN-Jiangsu Hengrui Medicine Co., Ltd.-2131914

PATIENT
  Age: 56 Year
  Sex: Male

DRUGS (9)
  1. CYCLOPHOSPHAMIDE [Suspect]
     Active Substance: CYCLOPHOSPHAMIDE
     Indication: Surgical preconditioning
  2. METHOTREXATE [Suspect]
     Active Substance: METHOTREXATE
  3. CYCLOSPORINE [Suspect]
     Active Substance: CYCLOSPORINE
  4. IDARUBICIN [Suspect]
     Active Substance: IDARUBICIN
  5. ACLARUBICIN [Suspect]
     Active Substance: ACLARUBICIN
  6. MYCOPHENOLATE MOFETIL [Suspect]
     Active Substance: MYCOPHENOLATE MOFETIL
  7. BUSULFAN [Suspect]
     Active Substance: BUSULFAN
  8. CYTARABINE [Suspect]
     Active Substance: CYTARABINE
  9. GRANULOCYTE COLONY-STIMULATING FACTOR NOS [Suspect]
     Active Substance: GRANULOCYTE COLONY-STIMULATING FACTOR NOS

REACTIONS (2)
  - Rectal cancer [Not Recovered/Not Resolved]
  - Product use in unapproved indication [Unknown]

NARRATIVE: CASE EVENT DATE: 20220422
